FAERS Safety Report 10501175 (Version 3)
Quarter: 2014Q4

REPORT INFORMATION
  Report Type: Spontaneous
  Country: CZ (occurrence: CZ)
  Receive Date: 20141007
  Receipt Date: 20141225
  Transmission Date: 20150528
  Serious: Yes (Hospitalization, Other)
  Sender: FDA-Public Use
  Company Number: CZ-AMGEN-CZESP2014070991

PATIENT
  Age: 44 Year
  Sex: Male
  Weight: 95 kg

DRUGS (11)
  1. ENBREL [Suspect]
     Active Substance: ETANERCEPT
     Indication: RHEUMATOID ARTHRITIS
     Dosage: 50 MG, WEEKLY
     Route: 058
     Dates: start: 20080618, end: 20130313
  2. ROSUCARD [Concomitant]
     Dosage: UNK, 1X/DAY
  3. MILURIT [Concomitant]
     Active Substance: ALLOPURINOL
     Dosage: 100 MG, 1X/DAY
  4. ENELBIN                            /00247502/ [Concomitant]
     Dosage: UNK
  5. HELICID                            /00661201/ [Concomitant]
     Dosage: UNK, 1X/DAY
  6. ACIDUM FOLICUM [Concomitant]
     Active Substance: FOLIC ACID
     Dosage: UNK, 1X/DAY
  7. MOVALIS [Concomitant]
     Active Substance: MELOXICAM
     Dosage: UNK, 1X/DAY
  8. ZOXON                              /00639301/ [Concomitant]
     Dosage: 4 MG, 1X/DAY
  9. MEDROL [Concomitant]
     Active Substance: METHYLPREDNISOLONE
     Dosage: 2 MG, 1X/DAY / DAILY OR EVERY OTHER DAY
  10. TARKA [Concomitant]
     Active Substance: TRANDOLAPRIL\VERAPAMIL HYDROCHLORIDE
     Dosage: UNK, 1X/DAY 240/4 DAILY
  11. METHOTREXATE [Concomitant]
     Active Substance: METHOTREXATE
     Dosage: 6 DF, WEEKLY

REACTIONS (14)
  - Rheumatoid arthritis [Unknown]
  - Fall [Unknown]
  - Hepatosplenomegaly [Unknown]
  - Pleural effusion [Unknown]
  - Interstitial lung disease [Unknown]
  - Rheumatoid lung [Unknown]
  - Liver function test abnormal [Unknown]
  - Nasopharyngitis [Unknown]
  - Myositis [Recovered/Resolved]
  - Myopathy [Unknown]
  - Transaminases increased [Unknown]
  - Polymyositis [Recovered/Resolved]
  - Liver disorder [Unknown]
  - Arthritis bacterial [Unknown]

NARRATIVE: CASE EVENT DATE: 201105
